FAERS Safety Report 7395850-6 (Version None)
Quarter: 2011Q2

REPORT INFORMATION
  Report Type: 
  Country: None (occurrence: None)
  Receive Date: 20110405
  Receipt Date: 20110331
  Transmission Date: 20111010
  Serious: Yes (Other)
  Sender: FDA-Public Use
  Company Number: US-BAYER-2011-028881

PATIENT
  Sex: Female
  Weight: 59 kg

DRUGS (2)
  1. ALEVE (CAPLET) [Suspect]
     Indication: BACK PAIN
     Dosage: BOTTLE COUNT 100S
     Route: 048
     Dates: start: 20110301, end: 20110301
  2. VITAMINS NOS [Concomitant]
     Dosage: UNK UNK, QD
     Route: 048

REACTIONS (1)
  - DIARRHOEA HAEMORRHAGIC [None]
